FAERS Safety Report 8988963 (Version 1)
Quarter: 2012Q4

REPORT INFORMATION
  Report Type: 
  Country: US (occurrence: US)
  Receive Date: 20121228
  Receipt Date: 20121228
  Transmission Date: 20130627
  Serious: No
  Sender: FDA-Public Use
  Company Number: PHEH2012US025304

PATIENT
  Sex: Female

DRUGS (4)
  1. TASIGNA [Suspect]
     Dosage: 200 mg, BID
  2. SYNTHROID [Concomitant]
     Dosage: 88 mg, QD
  3. LISINOPRIL [Concomitant]
     Dosage: 80 mg, UNK
  4. SYMBICORT [Concomitant]

REACTIONS (1)
  - Oropharyngeal pain [Unknown]
